FAERS Safety Report 12563367 (Version 1)
Quarter: 2016Q3

REPORT INFORMATION
  Report Type: Other
  Country: GB (occurrence: GB)
  Receive Date: 20160715
  Receipt Date: 20160715
  Transmission Date: 20161109
  Serious: Yes (Other)
  Sender: FDA-Public Use
  Company Number: GB-APOTEX-2008AP000233

PATIENT
  Age: 30 Year
  Sex: Female

DRUGS (18)
  1. PAROXETINE. [Suspect]
     Active Substance: PAROXETINE
     Dosage: 30 MG, UNK
     Route: 065
     Dates: start: 20040112, end: 20150602
  2. PAROXETINE. [Suspect]
     Active Substance: PAROXETINE
     Dosage: 10 MG, UNK
     Route: 065
     Dates: start: 20050203, end: 20150420
  3. PAROXETINE. [Suspect]
     Active Substance: PAROXETINE
     Dosage: 20 MG, QD
     Route: 065
     Dates: start: 1998, end: 20150405
  4. FLUOXETINE [Concomitant]
     Active Substance: FLUOXETINE HYDROCHLORIDE
     Indication: PRODUCT USED FOR UNKNOWN INDICATION
     Route: 065
     Dates: start: 19920206, end: 20060421
  5. MIANSERIN [Concomitant]
     Active Substance: MIANSERIN
     Indication: PRODUCT USED FOR UNKNOWN INDICATION
     Route: 065
  6. TRAZODONE [Concomitant]
     Active Substance: TRAZODONE HYDROCHLORIDE
     Indication: POOR QUALITY SLEEP
     Route: 065
     Dates: start: 20050826
  7. PAROXETINE. [Suspect]
     Active Substance: PAROXETINE
     Dosage: 20 MG, BID
     Route: 065
     Dates: start: 200209
  8. NICOTINE. [Concomitant]
     Active Substance: NICOTINE
     Indication: PRODUCT USED FOR UNKNOWN INDICATION
     Route: 065
     Dates: start: 200802
  9. PAXIL [Suspect]
     Active Substance: PAROXETINE HYDROCHLORIDE
     Indication: ANXIETY
     Dosage: UNK
     Route: 065
     Dates: start: 20100915, end: 20150420
  10. PAXIL [Suspect]
     Active Substance: PAROXETINE HYDROCHLORIDE
     Indication: DEPRESSION
  11. CIPRAMIL                           /00582602/ [Concomitant]
     Active Substance: CITALOPRAM HYDROBROMIDE
     Indication: PRODUCT USED FOR UNKNOWN INDICATION
     Route: 065
     Dates: start: 20060120, end: 2007
  12. DOTHIEPIN                          /00160402/ [Concomitant]
     Indication: PRODUCT USED FOR UNKNOWN INDICATION
     Route: 065
  13. PYRIDOXINE [Concomitant]
     Active Substance: PYRIDOXINE
     Indication: PREMENSTRUAL SYNDROME
     Route: 065
     Dates: start: 20060120
  14. PAROXETINE. [Suspect]
     Active Substance: PAROXETINE
     Indication: PANIC ATTACK
     Dosage: 20 MG, QD
     Route: 065
     Dates: start: 19990225
  15. PAROXETINE. [Suspect]
     Active Substance: PAROXETINE
     Dosage: 45 MG, UNK
  16. PAROXETINE. [Suspect]
     Active Substance: PAROXETINE
     Dosage: 15 MG, QD
     Route: 065
     Dates: start: 20150421
  17. PAROXETINE. [Suspect]
     Active Substance: PAROXETINE
     Dosage: UNK
     Route: 065
     Dates: start: 20100915, end: 20150420
  18. ZOLPIDEM [Concomitant]
     Active Substance: ZOLPIDEM\ZOLPIDEM TARTRATE
     Indication: PRODUCT USED FOR UNKNOWN INDICATION
     Route: 065

REACTIONS (13)
  - Malaise [Unknown]
  - Mood swings [Unknown]
  - Tremor [Unknown]
  - Hyperhidrosis [Unknown]
  - Panic attack [Unknown]
  - Poor quality sleep [Unknown]
  - Depression [Unknown]
  - Anger [Unknown]
  - Adverse drug reaction [Unknown]
  - Paraesthesia [Unknown]
  - Intentional self-injury [Unknown]
  - Drug withdrawal syndrome [Unknown]
  - Suicidal ideation [Unknown]

NARRATIVE: CASE EVENT DATE: 20030401
